FAERS Safety Report 16726879 (Version 2)
Quarter: 2019Q3

REPORT INFORMATION
  Report Type: Spontaneous
  Country: JP (occurrence: JP)
  Receive Date: 20190821
  Receipt Date: 20190828
  Transmission Date: 20191005
  Serious: Yes (Hospitalization, Other)
  Sender: FDA-Public Use
  Company Number: JP-VIFOR (INTERNATIONAL) INC.-VIT-2019-08049

PATIENT
  Age: 44 Year
  Sex: Male

DRUGS (4)
  1. FUROSEMIDE. [Concomitant]
     Active Substance: FUROSEMIDE
     Indication: HYPERTENSION
     Route: 065
  2. TELMISARTAN. [Concomitant]
     Active Substance: TELMISARTAN
     Indication: HYPERTENSION
     Route: 065
  3. HYDROCHLOROTHIAZIDE. [Concomitant]
     Active Substance: HYDROCHLOROTHIAZIDE
     Indication: HYPERTENSION
     Route: 065
  4. MIRCERA [Suspect]
     Active Substance: METHOXY POLYETHYLENE GLYCOL-EPOETIN BETA
     Indication: NEPHROGENIC ANAEMIA
     Route: 041

REACTIONS (11)
  - Weight increased [Unknown]
  - Posterior reversible encephalopathy syndrome [Recovered/Resolved]
  - Azotaemia [Unknown]
  - Staphylococcal infection [Recovered/Resolved]
  - Fluid overload [Unknown]
  - Dizziness [Recovering/Resolving]
  - Peritonitis bacterial [Recovered/Resolved]
  - Headache [Recovering/Resolving]
  - Oedema peripheral [Unknown]
  - Ataxia [Recovering/Resolving]
  - Hypertension [Recovered/Resolved]
